FAERS Safety Report 4319520-3 (Version None)
Quarter: 2004Q1

REPORT INFORMATION
  Report Type: 
  Country: None (occurrence: None)
  Receive Date: 20040315
  Receipt Date: 20040226
  Transmission Date: 20041129
  Serious: Yes (Other)
  Sender: FDA-Public Use
  Company Number: 8005682

PATIENT
  Age: 49 Year
  Sex: Female

DRUGS (4)
  1. KEPPRA [Suspect]
     Indication: CONVULSION
     Dosage: 1500 MG 2/D PO
     Route: 048
     Dates: start: 20031211
  2. CHEMOTHERAPY [Suspect]
     Indication: BRAIN NEOPLASM
     Dates: start: 20031228, end: 20040115
  3. RADIATION THERAPY [Suspect]
     Indication: BRAIN NEOPLASM
     Dates: start: 20031222, end: 20040201
  4. PROTONIX [Concomitant]

REACTIONS (3)
  - NEUTROPENIA [None]
  - THROMBOCYTOPENIA [None]
  - WHITE BLOOD CELL COUNT DECREASED [None]
